FAERS Safety Report 23593171 (Version 1)
Quarter: 2024Q1

REPORT INFORMATION
  Report Type: Spontaneous
  Country: DE (occurrence: DE)
  Receive Date: 20240304
  Receipt Date: 20240304
  Transmission Date: 20240410
  Serious: Yes (Life-Threatening)
  Sender: FDA-Public Use
  Company Number: DE-PEI-202400004758

PATIENT
  Age: 69 Year
  Sex: Male
  Weight: 92 kg

DRUGS (1)
  1. OPDIVO [Suspect]
     Active Substance: NIVOLUMAB
     Indication: Non-small cell lung cancer
     Dosage: 2 DOSE
     Dates: start: 20240220

REACTIONS (2)
  - Bronchospasm [Unknown]
  - Hypertension [Unknown]

NARRATIVE: CASE EVENT DATE: 20240220
